FAERS Safety Report 21307520 (Version 2)
Quarter: 2022Q4

REPORT INFORMATION
  Report Type: Report from Study
  Country: CA (occurrence: CA)
  Receive Date: 20220908
  Receipt Date: 20221104
  Transmission Date: 20230113
  Serious: Yes (Other)
  Sender: FDA-Public Use
  Company Number: CA-JNJFOC-20220906628

PATIENT
  Age: 59 Year
  Sex: Male

DRUGS (1)
  1. STELARA [Suspect]
     Active Substance: USTEKINUMAB
     Indication: Crohn^s disease
     Dosage: ON 02-SEP-2022, PATIENT RECEIVED 1ST INFUSION OF 390 MG OF STELARA AND PARTIAL HARVEY-BRADSHAW COMPL
     Route: 042
     Dates: start: 20220902

REACTIONS (7)
  - Pruritus [Recovering/Resolving]
  - Infusion related reaction [Recovering/Resolving]
  - Fatigue [Unknown]
  - Anxiety [Unknown]
  - Pain in extremity [Unknown]
  - Abdominal discomfort [Unknown]
  - Nasal congestion [Unknown]

NARRATIVE: CASE EVENT DATE: 20220101
